FAERS Safety Report 25386501 (Version 1)
Quarter: 2025Q2

REPORT INFORMATION
  Report Type: Spontaneous
  Country: US (occurrence: None)
  Receive Date: 20250602
  Receipt Date: 20250602
  Transmission Date: 20250716
  Serious: Yes (Hospitalization)
  Sender: FDA-CTU
  Company Number: None

PATIENT
  Age: 91 Year
  Sex: Male
  Weight: 99 kg

DRUGS (2)
  1. SPIRONOLACTONE [Suspect]
     Active Substance: SPIRONOLACTONE
     Indication: Hypertension
     Dates: start: 20230307
  2. LOSARTAN [Suspect]
     Active Substance: LOSARTAN

REACTIONS (3)
  - Hyperkalaemia [None]
  - Atrioventricular block first degree [None]
  - Drug hypersensitivity [None]

NARRATIVE: CASE EVENT DATE: 20250320
